FAERS Safety Report 6193467-2 (Version None)
Quarter: 2009Q2

REPORT INFORMATION
  Report Type: 
  Country: None (occurrence: None)
  Receive Date: 20090514
  Receipt Date: 20090514
  Transmission Date: 20091009
  Serious: Yes (Life-Threatening)
  Sender: FDA-Public Use
  Company Number: None

PATIENT
  Age: 52 Year
  Sex: Female
  Weight: 81.6475 kg

DRUGS (1)
  1. MATURE ADULTS 50+ MULTIVITAMIN EQUATE [Suspect]
     Indication: VITAMIN SUPPLEMENTATION
     Dosage: ONE TABLET DAILY
     Dates: start: 20090107, end: 20090108

REACTIONS (5)
  - PHARYNGEAL OEDEMA [None]
  - RASH GENERALISED [None]
  - SWELLING FACE [None]
  - SWOLLEN TONGUE [None]
  - URTICARIA [None]
